FAERS Safety Report 16701809 (Version 4)
Quarter: 2020Q3

REPORT INFORMATION
  Report Type: Report from Study
  Country: US (occurrence: US)
  Receive Date: 20190814
  Receipt Date: 20200916
  Transmission Date: 20201102
  Serious: Yes (Hospitalization)
  Sender: FDA-Public Use
  Company Number: PHEH2019US032942

PATIENT
  Sex: Female
  Weight: 67.58 kg

DRUGS (5)
  1. TREPROSTINIL. [Suspect]
     Active Substance: TREPROSTINIL
     Dosage: 86 NG/KG/MIN, CONTINUOUS
     Route: 042
     Dates: start: 20190411
  2. TREPROSTINIL. [Suspect]
     Active Substance: TREPROSTINIL
     Dosage: 86 NG/KG/MIN, CONTINUOUS
     Route: 042
     Dates: start: 20190411
  3. ADCIRCA [Concomitant]
     Active Substance: TADALAFIL
     Indication: PRODUCT USED FOR UNKNOWN INDICATION
     Dosage: UNK
     Route: 065
  4. LETAIRIS [Concomitant]
     Active Substance: AMBRISENTAN
     Indication: PRODUCT USED FOR UNKNOWN INDICATION
     Dosage: UNK
     Route: 065
  5. TREPROSTINIL. [Suspect]
     Active Substance: TREPROSTINIL
     Indication: PULMONARY ARTERIAL HYPERTENSION
     Dosage: 86 NG/KG/MIN
     Route: 042
     Dates: start: 20190411

REACTIONS (6)
  - Injection site erythema [Unknown]
  - Catheter site infection [Unknown]
  - Catheter site pain [Unknown]
  - Vascular device infection [Unknown]
  - Injection site infection [Unknown]
  - Catheter site swelling [Unknown]
